FAERS Safety Report 6505047-7 (Version None)
Quarter: 2009Q4

REPORT INFORMATION
  Report Type: 
  Country: None (occurrence: None)
  Receive Date: 20091218
  Receipt Date: 20091215
  Transmission Date: 20100525
  Serious: Yes (Death)
  Sender: FDA-Public Use
  Company Number: GB-JNJFOC-20091204206

PATIENT
  Age: 42 Year
  Sex: Male

DRUGS (3)
  1. DURAGESIC-100 [Suspect]
     Indication: ANALGESIC THERAPY
     Route: 062
  2. ORAMORPH SR [Concomitant]
  3. MST [Concomitant]

REACTIONS (2)
  - CARDIOPULMONARY FAILURE [None]
  - OVERDOSE [None]
